FAERS Safety Report 9339014 (Version 1)
Quarter: 2013Q2

REPORT INFORMATION
  Report Type: Spontaneous
  Country: US (occurrence: US)
  Receive Date: 20130610
  Receipt Date: 20130610
  Transmission Date: 20140414
  Serious: Yes (Other)
  Sender: FDA-Public Use
  Company Number: US-ELI_LILLY_AND_COMPANY-US201306000521

PATIENT
  Age: 73 Year
  Sex: Female

DRUGS (1)
  1. HUMALOG LISPRO [Suspect]
     Indication: TYPE 1 DIABETES MELLITUS

REACTIONS (5)
  - Renal disorder [Unknown]
  - Eye movement disorder [Unknown]
  - Faecal incontinence [Unknown]
  - Blood glucose increased [Unknown]
  - Drug ineffective [Unknown]
